FAERS Safety Report 8886540 (Version 1)
Quarter: 2012Q4

REPORT INFORMATION
  Report Type: 
  Country: US (occurrence: US)
  Receive Date: 20121105
  Receipt Date: 20121105
  Transmission Date: 20130627
  Serious: Yes (Hospitalization, Other)
  Sender: FDA-Public Use
  Company Number: US-ELI_LILLY_AND_COMPANY-US201210009654

PATIENT
  Sex: Female

DRUGS (4)
  1. EVISTA [Suspect]
     Indication: OSTEOPOROSIS
     Dosage: 60 mg, qd
  2. ATENOLOL [Concomitant]
     Dosage: 25 mg, unknown
  3. CALCIUM [Concomitant]
  4. VITAMIN D NOS [Concomitant]

REACTIONS (2)
  - Fracture [Recovered/Resolved]
  - Fall [Recovered/Resolved]
